FAERS Safety Report 7688153-3 (Version None)
Quarter: 2011Q3

REPORT INFORMATION
  Report Type: 
  Country: None (occurrence: None)
  Receive Date: 20110817
  Receipt Date: 20110805
  Transmission Date: 20111222
  Serious: Yes (Hospitalization)
  Sender: FDA-Public Use
  Company Number: FR-SANOFI-AVENTIS-2011SA050102

PATIENT
  Age: 85 Year
  Sex: Female
  Weight: 85 kg

DRUGS (6)
  1. CORDARONE [Concomitant]
     Route: 048
  2. TINZAPARIN SODIUM [Suspect]
     Indication: THROMBOSIS PROPHYLAXIS
     Route: 058
     Dates: start: 20110101, end: 20110601
  3. KEPPRA [Concomitant]
     Indication: EPILEPSY
     Route: 048
  4. LASIX [Suspect]
     Route: 048
  5. BISOPROLOL FUMARATE [Concomitant]
     Route: 048
  6. PREDNISONE [Concomitant]
     Route: 048

REACTIONS (4)
  - HAEMATURIA [None]
  - RENAL FAILURE ACUTE [None]
  - HAEMATOMA [None]
  - METRORRHAGIA [None]
